FAERS Safety Report 7277155-7 (Version None)
Quarter: 2011Q1

REPORT INFORMATION
  Report Type: 
  Country: None (occurrence: None)
  Receive Date: 20110202
  Receipt Date: 20110202
  Transmission Date: 20110831
  Serious: Yes (Other)
  Sender: FDA-Public Use
  Company Number: None

PATIENT
  Sex: Female
  Weight: 107.0489 kg

DRUGS (1)
  1. NUVARING [Suspect]

REACTIONS (9)
  - DISTURBANCE IN ATTENTION [None]
  - HEADACHE [None]
  - MOOD SWINGS [None]
  - DISSOCIATION [None]
  - LOSS OF LIBIDO [None]
  - INCREASED APPETITE [None]
  - IRRITABLE BOWEL SYNDROME [None]
  - WEIGHT INCREASED [None]
  - IMPAIRED WORK ABILITY [None]
